FAERS Safety Report 14302656 (Version 1)
Quarter: 2017Q4

REPORT INFORMATION
  Report Type: Spontaneous
  Country: US (occurrence: US)
  Receive Date: 20171219
  Receipt Date: 20171219
  Transmission Date: 20180321
  Serious: Yes (Other)
  Sender: FDA-Public Use
  Company Number: None

PATIENT
  Age: 15 Year
  Sex: Male
  Weight: 49.95 kg

DRUGS (4)
  1. FOSAMAX [Concomitant]
     Active Substance: ALENDRONATE SODIUM
  2. EMFLAZA [Suspect]
     Active Substance: DEFLAZACORT
     Indication: DUCHENNE MUSCULAR DYSTROPHY
     Dosage: ?          QUANTITY:15 TABLET(S);?
     Route: 048
     Dates: start: 20170801
  3. LISINOPRIL. [Concomitant]
     Active Substance: LISINOPRIL
  4. SUPPLEMENTS [Concomitant]
     Active Substance: UNSPECIFIED INGREDIENT

REACTIONS (5)
  - Asthenia [None]
  - Screaming [None]
  - Product substitution issue [None]
  - Crying [None]
  - Anger [None]

NARRATIVE: CASE EVENT DATE: 20170801
